FAERS Safety Report 24228586 (Version 2)
Quarter: 2024Q3

REPORT INFORMATION
  Report Type: Spontaneous
  Country: SK (occurrence: SK)
  Receive Date: 20240820
  Receipt Date: 20240823
  Transmission Date: 20241017
  Serious: Yes (Other)
  Sender: MYLAN
  Company Number: SK-GLENMARK PHARMACEUTICALS-2024GMK092859

PATIENT
  Age: 58 Year
  Sex: Male

DRUGS (2)
  1. SUNITINIB [Suspect]
     Active Substance: SUNITINIB
     Indication: Metastases to lymph nodes
     Dosage: 50 MILLIGRAM, QD
     Route: 065
  2. SUNITINIB [Suspect]
     Active Substance: SUNITINIB
     Indication: Renal cell carcinoma
     Dosage: UNK (RESTARTED)
     Route: 065

REACTIONS (5)
  - Metastases to lymph nodes [Unknown]
  - Disease progression [Unknown]
  - Large intestinal ulcer [Unknown]
  - Clear cell renal cell carcinoma [Unknown]
  - Psoas abscess [Unknown]

NARRATIVE: CASE EVENT DATE: 20220801
